FAERS Safety Report 9282635 (Version 1)
Quarter: 2013Q2

REPORT INFORMATION
  Report Type: Spontaneous
  Country: US (occurrence: None)
  Receive Date: 20130509
  Receipt Date: 20130509
  Transmission Date: 20140414
  Serious: Yes (Other)
  Sender: FDA-Public Use
  Company Number: None

PATIENT
  Age: 45 Year
  Sex: Female
  Weight: 74.84 kg

DRUGS (10)
  1. COPAXONE [Suspect]
     Indication: MULTIPLE SCLEROSIS
     Dates: start: 20130326, end: 20130404
  2. OTC MULTI VIT-GNC [Concomitant]
  3. OTC VIT E [Concomitant]
  4. VIT D [Concomitant]
  5. VITAMIN B12 [Concomitant]
  6. OTC BIOTIN [Concomitant]
  7. OTC OMEGA 3 [Concomitant]
  8. OTC BETA CAROT [Concomitant]
  9. OTC VIT A [Concomitant]
  10. OTC VIT B COMPLEX [Concomitant]

REACTIONS (5)
  - Injection site pain [None]
  - Arthralgia [None]
  - Insomnia [None]
  - Injection site swelling [None]
  - Injection site haemorrhage [None]
